FAERS Safety Report 10108590 (Version 1)
Quarter: 2014Q2

REPORT INFORMATION
  Report Type: Spontaneous
  Country: US (occurrence: US)
  Receive Date: 20140425
  Receipt Date: 20140425
  Transmission Date: 20141212
  Serious: Yes (Hospitalization)
  Sender: FDA-Public Use
  Company Number: US-BIOGENIDEC-2014BI037276

PATIENT
  Age: 65 Year
  Sex: Female

DRUGS (6)
  1. AVONEX [Suspect]
     Indication: MULTIPLE SCLEROSIS
     Route: 030
     Dates: start: 19970601, end: 200308
  2. AVONEX [Suspect]
     Indication: MULTIPLE SCLEROSIS
     Route: 030
     Dates: start: 200308, end: 20130312
  3. AVONEX [Suspect]
     Indication: MULTIPLE SCLEROSIS
     Route: 030
     Dates: start: 20130319, end: 201309
  4. AVONEX [Suspect]
     Indication: MULTIPLE SCLEROSIS
     Route: 030
  5. CELLCEPT [Concomitant]
     Indication: MULTIPLE SCLEROSIS
  6. PREDNISONE [Concomitant]

REACTIONS (22)
  - Loss of consciousness [Recovered/Resolved]
  - Dyspnoea [Recovered/Resolved]
  - Convulsion [Recovered/Resolved]
  - Cystitis [Recovered/Resolved]
  - Peroneal nerve palsy [Recovered/Resolved]
  - Strabismus [Recovered/Resolved]
  - Hypertension [Unknown]
  - Type 2 diabetes mellitus [Not Recovered/Not Resolved]
  - Chronic obstructive pulmonary disease [Not Recovered/Not Resolved]
  - Mania [Recovered/Resolved]
  - Hyperglycaemia [Recovered/Resolved]
  - Arterial occlusive disease [Not Recovered/Not Resolved]
  - Restless legs syndrome [Not Recovered/Not Resolved]
  - Nasopharyngitis [Recovered/Resolved]
  - Bronchitis [Recovered/Resolved]
  - Pleurisy [Recovered/Resolved]
  - Chronic inflammatory demyelinating polyradiculoneuropathy [Not Recovered/Not Resolved]
  - Muscle spasms [Not Recovered/Not Resolved]
  - Drug hypersensitivity [Recovered/Resolved]
  - Alopecia [Not Recovered/Not Resolved]
  - Insomnia [Recovered/Resolved]
  - Multiple sclerosis relapse [Recovered/Resolved]
